FAERS Safety Report 10151520 (Version 1)
Quarter: 2014Q2

REPORT INFORMATION
  Report Type: Report from Study
  Country: JP (occurrence: JP)
  Receive Date: 20140503
  Receipt Date: 20140503
  Transmission Date: 20141212
  Serious: Yes (Other)
  Sender: FDA-Public Use
  Company Number: PHHY2014JP053473

PATIENT
  Age: 34 Year
  Sex: Male

DRUGS (1)
  1. LEPONEX / CLOZARIL [Suspect]

REACTIONS (2)
  - Extrapyramidal disorder [Recovering/Resolving]
  - Bradykinesia [Recovering/Resolving]
